FAERS Safety Report 6480521-0 (Version None)
Quarter: 2009Q4

REPORT INFORMATION
  Report Type: 
  Country: None (occurrence: None)
  Receive Date: 20091202
  Receipt Date: 20091119
  Transmission Date: 20100525
  Serious: Yes (Hospitalization)
  Sender: FDA-Public Use
  Company Number: SPV1-2009-02366

PATIENT
  Sex: Male

DRUGS (4)
  1. FOSRENOL [Suspect]
     Indication: RENAL FAILURE CHRONIC
     Dosage: 1000 MG, WITH MEALS AND SNACKS, ORAL
     Route: 048
     Dates: start: 20070101
  2. ALLOPURINOL [Concomitant]
  3. ASPIRIN [Concomitant]
  4. LACTULOSE [Concomitant]

REACTIONS (4)
  - CELLULITIS [None]
  - ORTHOSTATIC HYPOTENSION [None]
  - PRODUCT QUALITY ISSUE [None]
  - WRONG TECHNIQUE IN DRUG USAGE PROCESS [None]
